FAERS Safety Report 11081514 (Version 1)
Quarter: 2015Q2

REPORT INFORMATION
  Report Type: Spontaneous
  Country: DE (occurrence: None)
  Receive Date: 20150430
  Receipt Date: 20150430
  Transmission Date: 20150821
  Serious: Yes (Hospitalization)
  Sender: FDA-Public Use
  Company Number: None

PATIENT
  Sex: Female
  Weight: 68 kg

DRUGS (2)
  1. DACLATASVIR 60 MG BMS [Suspect]
     Active Substance: DACLATASVIR
     Indication: HEPATITIS C
     Route: 048
     Dates: start: 20140911, end: 20141122
  2. SOVALDI [Suspect]
     Active Substance: SOFOSBUVIR
     Indication: HEPATITIS C
     Route: 048
     Dates: start: 20140911, end: 20141122

REACTIONS (4)
  - Varices oesophageal [None]
  - Polyp [None]
  - Haemoglobin decreased [None]
  - Haematemesis [None]

NARRATIVE: CASE EVENT DATE: 20140918
